FAERS Safety Report 25612152 (Version 1)
Quarter: 2025Q3

REPORT INFORMATION
  Report Type: Spontaneous
  Country: US (occurrence: US)
  Receive Date: 20250728
  Receipt Date: 20250728
  Transmission Date: 20251020
  Serious: Yes (Life-Threatening, Hospitalization)
  Sender: ROCHE
  Company Number: US-ROCHE-10000344321

PATIENT
  Sex: Female

DRUGS (1)
  1. TECENTRIQ [Suspect]
     Active Substance: ATEZOLIZUMAB
     Indication: Product used for unknown indication
     Route: 065

REACTIONS (9)
  - Fatigue [Unknown]
  - Nausea [Unknown]
  - Brain fog [Unknown]
  - Pyrexia [Unknown]
  - Pancytopenia [Unknown]
  - Hepatic enzyme abnormal [Unknown]
  - Muscle disorder [Unknown]
  - Loss of personal independence in daily activities [Unknown]
  - Gait inability [Unknown]
